FAERS Safety Report 5930712-X (Version None)
Quarter: 2008Q4

REPORT INFORMATION
  Report Type: 
  Country: None (occurrence: None)
  Receive Date: 20081009
  Receipt Date: 20080324
  Transmission Date: 20090506
  Serious: Yes (Other)
  Sender: FDA-Public Use
  Company Number: 18795

PATIENT
  Age: 5 Year
  Sex: Male
  Weight: 20.4 kg

DRUGS (4)
  1. METHOTREXATE [Suspect]
     Indication: ACUTE LYMPHOCYTIC LEUKAEMIA
     Dosage: 5 G/M2 ONCE IV
     Route: 042
     Dates: start: 20080317, end: 20080318
  2. MATINIB [Concomitant]
  3. LEUCOVORIN CALCIUM [Concomitant]
  4. NAHCO3 [Concomitant]

REACTIONS (1)
  - CHEMOTHERAPEUTIC DRUG LEVEL INCREASED [None]
